FAERS Safety Report 13959454 (Version 1)
Quarter: 2017Q3

REPORT INFORMATION
  Report Type: Spontaneous
  Country: DE (occurrence: DE)
  Receive Date: 20170912
  Receipt Date: 20170912
  Transmission Date: 20171128
  Serious: Yes (Other)
  Sender: FDA-Public Use
  Company Number: DE-TORRENT-00007045

PATIENT
  Age: 28 Year
  Sex: Female

DRUGS (3)
  1. FOLSAURE [Concomitant]
     Active Substance: FOLIC ACID
  2. VENLAFAXINE [Suspect]
     Active Substance: VENLAFAXINE HYDROCHLORIDE
  3. QUETIAPINE. [Suspect]
     Active Substance: QUETIAPINE

REACTIONS (3)
  - Gestational diabetes [Recovered/Resolved]
  - Exposure during pregnancy [Unknown]
  - Pre-eclampsia [Unknown]
